FAERS Safety Report 20740391 (Version 1)
Quarter: 2022Q2

REPORT INFORMATION
  Report Type: Report from Study
  Country: US (occurrence: AU)
  Receive Date: 20220422
  Receipt Date: 20220422
  Transmission Date: 20220721
  Serious: Yes (Other)
  Sender: FDA-Public Use
  Company Number: US-ABBVIE-22K-163-4363460-00

PATIENT
  Sex: Male
  Weight: 70.824 kg

DRUGS (11)
  1. SYNTHROID [Suspect]
     Active Substance: LEVOTHYROXINE SODIUM
     Indication: Hypothyroidism
     Route: 048
  2. SYNTHROID [Suspect]
     Active Substance: LEVOTHYROXINE SODIUM
     Indication: Hypothyroidism
  3. LEVOTHYROXINE [Suspect]
     Active Substance: LEVOTHYROXINE
     Indication: Hypothyroidism
     Route: 048
  4. LEVOTHYROXINE [Suspect]
     Active Substance: LEVOTHYROXINE
     Route: 048
  5. PROCARDIA [Concomitant]
     Active Substance: NIFEDIPINE
     Indication: Hypertension
  6. LOSARTAN [Concomitant]
     Active Substance: LOSARTAN
     Indication: Product used for unknown indication
  7. METOPROLOL [Concomitant]
     Active Substance: METOPROLOL
     Indication: Product used for unknown indication
  8. SIMVASTATIN [Concomitant]
     Active Substance: SIMVASTATIN
     Indication: Product used for unknown indication
  9. VITAMIN D [Concomitant]
     Active Substance: VITAMIN D NOS
     Indication: Product used for unknown indication
  10. PROMAX [Concomitant]
     Indication: Product used for unknown indication
  11. PFIZER-BIONTECH COVID-19 VACCINE [Concomitant]
     Active Substance: TOZINAMERAN
     Indication: COVID-19 immunisation
     Route: 030

REACTIONS (5)
  - Macular degeneration [Not Recovered/Not Resolved]
  - Memory impairment [Not Recovered/Not Resolved]
  - Incorrect dose administered [Unknown]
  - Visual impairment [Not Recovered/Not Resolved]
  - Tremor [Recovered/Resolved]

NARRATIVE: CASE EVENT DATE: 20210101
